FAERS Safety Report 9087041 (Version 1)
Quarter: 2013Q1

REPORT INFORMATION
  Report Type: Report from Study
  Country: CA (occurrence: CA)
  Receive Date: 20130217
  Receipt Date: 20130217
  Transmission Date: 20140127
  Serious: Yes (Other)
  Sender: FDA-Public Use
  Company Number: CA-JNJFOC-20130203027

PATIENT
  Sex: Female
  Weight: 83 kg

DRUGS (5)
  1. REMICADE [Suspect]
     Indication: RHEUMATOID ARTHRITIS
     Route: 042
     Dates: start: 201010
  2. NAPROXEN [Concomitant]
     Dosage: I
     Route: 048
  3. AMITRIPTYLINE [Concomitant]
     Route: 065
  4. PREVACID [Concomitant]
     Route: 065
  5. ANTIHYPERTENSIVE (UNSPECIFIED) [Concomitant]
     Indication: HYPERTENSION
     Route: 065

REACTIONS (6)
  - Malaise [Unknown]
  - Chest pain [Unknown]
  - Chest discomfort [Unknown]
  - Paraesthesia [Unknown]
  - Pain [Unknown]
  - Nausea [Unknown]
